FAERS Safety Report 24292838 (Version 1)
Quarter: 2024Q3

REPORT INFORMATION
  Report Type: Spontaneous
  Country: US (occurrence: None)
  Receive Date: 20240906
  Receipt Date: 20240906
  Transmission Date: 20241017
  Serious: No
  Sender: DOMPE FARMACEUTICI
  Company Number: US-FARMAPROD-202308-202310-3164

PATIENT
  Sex: Female

DRUGS (12)
  1. OXERVATE [Suspect]
     Active Substance: CENEGERMIN-BKBJ
     Indication: Neurotrophic keratopathy
     Route: 047
     Dates: start: 20231002
  2. FUROSEMIDE [Concomitant]
     Active Substance: FUROSEMIDE
  3. FUROSEMIDE [Concomitant]
     Active Substance: FUROSEMIDE
  4. SIMBRINZA [Concomitant]
     Active Substance: BRIMONIDINE TARTRATE\BRINZOLAMIDE
     Dosage: 1 %-0.2 %
  5. LATANOPROST [Concomitant]
     Active Substance: LATANOPROST
  6. ATENOLOL [Concomitant]
     Active Substance: ATENOLOL
  7. PANTOPRAZOLE SODIUM [Concomitant]
     Active Substance: PANTOPRAZOLE SODIUM
  8. ELIQUIS [Concomitant]
     Active Substance: APIXABAN
  9. ASPIRIN [Concomitant]
     Active Substance: ASPIRIN
  10. AMOXICILLIN [Concomitant]
     Active Substance: AMOXICILLIN
  11. SIMVASTATIN [Concomitant]
     Active Substance: SIMVASTATIN
  12. TAMSULOSIN HYDROCHLORIDE [Concomitant]
     Active Substance: TAMSULOSIN HYDROCHLORIDE

REACTIONS (1)
  - Eye pain [Unknown]
